FAERS Safety Report 4734997-7 (Version None)
Quarter: 2005Q3

REPORT INFORMATION
  Report Type: 
  Country: None (occurrence: None)
  Receive Date: 20050804
  Receipt Date: 20050719
  Transmission Date: 20060218
  Serious: Yes (Other)
  Sender: FDA-Public Use
  Company Number: USA050699706

PATIENT
  Sex: Female

DRUGS (11)
  1. FORTEO [Suspect]
     Dates: start: 20050301, end: 20050101
  2. SINGULAIR       (MONTELUKAST  /01362601/) [Concomitant]
  3. VITAMIN D [Concomitant]
  4. ACETAMINOPHEN W/ PROPOXYPHENE HCL [Concomitant]
  5. NAPROXEN SODIUM [Concomitant]
  6. SYNTHROID [Concomitant]
  7. VAGIFEM (ESTRADIOL  /00045401/) [Concomitant]
  8. PAXIL [Concomitant]
  9. ZINC [Concomitant]
  10. VITAMIN E [Concomitant]
  11. VITAMIN B COMPLEX CAP [Concomitant]

REACTIONS (4)
  - DRUG HYPERSENSITIVITY [None]
  - EYE SWELLING [None]
  - PHARYNGEAL OEDEMA [None]
  - THROAT TIGHTNESS [None]
